FAERS Safety Report 17010034 (Version 3)
Quarter: 2020Q2

REPORT INFORMATION
  Report Type: Report from Study
  Country: CA (occurrence: CA)
  Receive Date: 20191108
  Receipt Date: 20200422
  Transmission Date: 20200713
  Serious: Yes (Hospitalization, Other)
  Sender: FDA-Public Use
  Company Number: CA-ROCHE-1819646

PATIENT
  Age: 68 Year
  Sex: Female

DRUGS (11)
  1. BISOPROLOL [Concomitant]
     Active Substance: BISOPROLOL
  2. ALLOPURINOL. [Concomitant]
     Active Substance: ALLOPURINOL
  3. COTELLIC [Suspect]
     Active Substance: COBIMETINIB
     Dosage: IT WAS ON HOLD IN BETWEEN IN UNK-2018 AND RESTARTED FROM 06-NOV-2018
     Route: 048
     Dates: start: 2018, end: 2018
  4. ZELBORAF [Suspect]
     Active Substance: VEMURAFENIB
     Route: 048
     Dates: start: 20160918, end: 20160923
  5. ZELBORAF [Suspect]
     Active Substance: VEMURAFENIB
     Route: 048
     Dates: end: 20161215
  6. ZELBORAF [Suspect]
     Active Substance: VEMURAFENIB
     Route: 048
  7. COTELLIC [Suspect]
     Active Substance: COBIMETINIB
     Route: 048
  8. ZELBORAF [Suspect]
     Active Substance: VEMURAFENIB
     Indication: METASTATIC MALIGNANT MELANOMA
     Route: 048
     Dates: start: 20160812, end: 20160816
  9. COTELLIC [Suspect]
     Active Substance: COBIMETINIB
     Indication: METASTATIC MALIGNANT MELANOMA
     Route: 048
     Dates: start: 20160812
  10. COTELLIC [Suspect]
     Active Substance: COBIMETINIB
     Route: 048
     Dates: start: 2018, end: 2018
  11. ELIQUIS [Concomitant]
     Active Substance: APIXABAN

REACTIONS (7)
  - Blindness [Recovering/Resolving]
  - Visual impairment [Unknown]
  - Rash [Unknown]
  - Vision blurred [Unknown]
  - Halo vision [Unknown]
  - Internal haemorrhage [Unknown]
  - Incorrect dose administered [Unknown]

NARRATIVE: CASE EVENT DATE: 201609
